FAERS Safety Report 4450271-0 (Version None)
Quarter: 2004Q3

REPORT INFORMATION
  Report Type: 
  Country: None (occurrence: None)
  Receive Date: 20040915
  Receipt Date: 20040831
  Transmission Date: 20050211
  Serious: Yes (Death, Hospitalization, Other)
  Sender: FDA-Public Use
  Company Number: USA-2003-0010572

PATIENT
  Age: 41 Year
  Sex: Female
  Weight: 76.6 kg

DRUGS (6)
  1. OXYCONTIN [Suspect]
     Indication: PAIN
     Dosage: SEE IMAGE
     Route: 048
     Dates: start: 20020101, end: 20030201
  2. OXYIR CAPSULES 5MG (OXYCODONE HYDROCHLORIDE) IR CAPSULE [Suspect]
     Indication: PAIN
     Dosage: 5 MG, ORAL
     Route: 048
  3. OXYCODONE HCL [Suspect]
     Indication: PAIN
     Dosage: 5 MG
  4. NITRO ^SOLVAY^ (GLYCERYL TRINITRATE) [Concomitant]
  5. SOMA [Concomitant]
  6. RESTORIL [Concomitant]

REACTIONS (16)
  - ACUTE MYOCARDIAL INFARCTION [None]
  - ANXIETY [None]
  - BRONCHITIS [None]
  - CHEST PAIN [None]
  - CONDITION AGGRAVATED [None]
  - CORONARY ARTERY DISEASE [None]
  - DRUG ABUSER [None]
  - DRUG DEPENDENCE [None]
  - DYSARTHRIA [None]
  - DYSPNOEA [None]
  - ELECTROCARDIOGRAM T WAVE ABNORMAL [None]
  - EMOTIONAL DISTRESS [None]
  - MITRAL VALVE INCOMPETENCE [None]
  - PAIN [None]
  - REFUSAL OF TREATMENT BY PATIENT [None]
  - VENTRICULAR HYPOKINESIA [None]
